FAERS Safety Report 8787572 (Version 1)
Quarter: 2012Q4

REPORT INFORMATION
  Report Type: Report from Study
  Country: US (occurrence: US)
  Receive Date: 20120914
  Receipt Date: 20120914
  Transmission Date: 20130627
  Serious: No
  Sender: FDA-Public Use
  Company Number: US-VERTEX PHARMACEUTICAL INC.-AE-2012-010625

PATIENT
  Sex: Male
  Weight: 103.9 kg

DRUGS (10)
  1. INCIVEK [Suspect]
     Indication: HEPATITIS C
     Route: 048
     Dates: start: 2012
  2. RIBASPERE [Concomitant]
     Indication: HEPATITIS C
     Route: 048
     Dates: start: 2012
  3. PEGASYS [Concomitant]
     Indication: HEPATITIS C
     Route: 058
     Dates: start: 2012
  4. COREG CR [Concomitant]
     Route: 048
  5. XYZAL [Concomitant]
     Route: 048
  6. AMLODIPINE BESYLATE [Concomitant]
     Route: 048
  7. AVAPRO [Concomitant]
     Route: 048
  8. HYDROCHLOROTHIAZIDE [Concomitant]
  9. GRALISE ER [Concomitant]
     Route: 048
  10. NAPRELAN CR [Concomitant]

REACTIONS (3)
  - White blood cell count decreased [Unknown]
  - Fatigue [Unknown]
  - Red blood cell count decreased [Unknown]
